FAERS Safety Report 10069153 (Version 1)
Quarter: 2014Q2

REPORT INFORMATION
  Report Type: Spontaneous
  Country: IT (occurrence: IT)
  Receive Date: 20140409
  Receipt Date: 20140409
  Transmission Date: 20141212
  Serious: Yes (Other)
  Sender: FDA-Public Use
  Company Number: PHHY2014IT041112

PATIENT
  Age: 71 Year
  Sex: Female

DRUGS (4)
  1. WARFARIN [Suspect]
     Dosage: 2.5 MG, DAILY
  2. METOPROLOL [Concomitant]
  3. FLECAINIDE [Concomitant]
  4. VALSARTAN [Concomitant]

REACTIONS (11)
  - Haemorrhage [Recovered/Resolved]
  - Swelling [Recovered/Resolved]
  - Paralysis [Unknown]
  - Back pain [Unknown]
  - Paraesthesia [Unknown]
  - Muscular weakness [Unknown]
  - Hypotonia [Unknown]
  - Areflexia [Unknown]
  - Decreased vibratory sense [Unknown]
  - Spinal cord haemorrhage [Recovered/Resolved]
  - Coordination abnormal [Unknown]
